FAERS Safety Report 4845335-3 (Version None)
Quarter: 2005Q4

REPORT INFORMATION
  Report Type: 
  Country: None (occurrence: None)
  Receive Date: 20051205
  Receipt Date: 20051129
  Transmission Date: 20060501
  Serious: Yes (Other)
  Sender: FDA-Public Use
  Company Number: GB-GLAXOSMITHKLINE-B0402153A

PATIENT
  Sex: Male
  Weight: 5 kg

DRUGS (2)
  1. AVODART [Suspect]
     Indication: URINARY TRACT OBSTRUCTION
     Dosage: 500MCG UNKNOWN
     Route: 048
     Dates: start: 20050505, end: 20051101
  2. TAMSULOSIN [Concomitant]
     Dosage: 400MCG PER DAY
     Route: 048

REACTIONS (1)
  - ARTHRALGIA [None]
